FAERS Safety Report 6435702-9 (Version None)
Quarter: 2009Q4

REPORT INFORMATION
  Report Type: 
  Country: None (occurrence: None)
  Receive Date: 20091111
  Receipt Date: 20091110
  Transmission Date: 20100525
  Serious: No
  Sender: FDA-Public Use
  Company Number: US-BAYER-200916304BCC

PATIENT
  Age: 51 Year

DRUGS (1)
  1. DESONATE GEL [Suspect]
     Indication: PRURITUS
     Route: 065

REACTIONS (2)
  - DRUG INEFFECTIVE [None]
  - PRURITUS [None]
